FAERS Safety Report 18169218 (Version 3)
Quarter: 2020Q3

REPORT INFORMATION
  Report Type: Report from Study
  Country: AU (occurrence: AU)
  Receive Date: 20200818
  Receipt Date: 20200826
  Transmission Date: 20201103
  Serious: Yes (Life-Threatening, Hospitalization)
  Sender: FDA-Public Use
  Company Number: AU-ROCHE-2630209

PATIENT
  Age: 55 Year
  Sex: Female
  Weight: 60 kg

DRUGS (44)
  1. PARACETAMOL [Concomitant]
     Active Substance: ACETAMINOPHEN
     Route: 048
     Dates: start: 20200616, end: 20200616
  2. CETIRIZINE [Concomitant]
     Active Substance: CETIRIZINE HYDROCHLORIDE
     Route: 048
     Dates: start: 20200616, end: 20200616
  3. ALLOPURINOL. [Concomitant]
     Active Substance: ALLOPURINOL
     Route: 048
     Dates: start: 202001
  4. ALBUMIN [Concomitant]
     Active Substance: ALBUMIN HUMAN
     Indication: HYPOALBUMINAEMIA
     Route: 042
     Dates: start: 20200624, end: 20200624
  5. QUETIAPINE. [Concomitant]
     Active Substance: QUETIAPINE
     Route: 048
     Dates: start: 20200628
  6. NYSTATIN. [Concomitant]
     Active Substance: NYSTATIN
     Route: 048
     Dates: start: 20200626
  7. OXALIPLATIN. [Suspect]
     Active Substance: OXALIPLATIN
     Indication: B-CELL LYMPHOMA
     Dosage: THIS WAS MOST RECENT DOSE OF OXALIPLATIN, 166 MG PRIOR TO SAE ONSET
     Route: 042
     Dates: start: 20200617
  8. MAGNESIUM SULFATE. [Concomitant]
     Active Substance: MAGNESIUM SULFATE
     Dosage: 20 OTHER
     Route: 042
     Dates: start: 20200624, end: 20200624
  9. FRUSEMIDE [Concomitant]
     Active Substance: FUROSEMIDE
     Route: 042
     Dates: start: 20200624, end: 20200624
  10. FAMOTIDINE. [Concomitant]
     Active Substance: FAMOTIDINE
     Route: 048
     Dates: start: 20200623, end: 20200623
  11. MAGMIN [Concomitant]
     Active Substance: MAGNESIUM ASPARTATE
     Route: 048
     Dates: start: 20200623, end: 20200623
  12. TEMAZEPAM. [Concomitant]
     Active Substance: TEMAZEPAM
     Route: 048
     Dates: start: 20200628, end: 20200628
  13. MELATONIN [Concomitant]
     Active Substance: MELATONIN
     Route: 048
     Dates: start: 20200628
  14. PLATELETS [Concomitant]
     Active Substance: HUMAN PLATELET, ALLOGENIC
     Route: 042
     Dates: start: 20200626, end: 20200626
  15. PETER MAC MOUTHWASH POWDER [Concomitant]
     Route: 048
     Dates: start: 20200626, end: 20200626
  16. HYDROCORTISONE. [Concomitant]
     Active Substance: HYDROCORTISONE
     Route: 042
     Dates: start: 20200616, end: 20200616
  17. MAGNESIUM [Concomitant]
     Active Substance: MAGNESIUM
     Route: 048
     Dates: start: 202001
  18. PLATELETS [Concomitant]
     Active Substance: HUMAN PLATELET, ALLOGENIC
     Route: 042
     Dates: start: 20200629, end: 20200629
  19. CYCLIZINE [Concomitant]
     Active Substance: CYCLIZINE
     Indication: PRURITUS
     Route: 042
     Dates: start: 20200624, end: 20200624
  20. METHYLPREDNISOLONE. [Concomitant]
     Active Substance: METHYLPREDNISOLONE
     Route: 042
     Dates: start: 20200623, end: 20200623
  21. MAGNESIUM ASPARTATE [Concomitant]
     Active Substance: MAGNESIUM ASPARTATE
     Route: 048
     Dates: start: 20200626
  22. RO7082859 (CD20/C3 T?CELL BISPECIFIC MAB) [Suspect]
     Active Substance: GLOFITAMAB
     Indication: B-CELL LYMPHOMA
     Dosage: THIS WAS MOST RECENT DOSE OF RO7082859, 2.5 MG PRIOR TO SAE ONSET: 23/JUN/2020?DATE OF MOST RECENT D
     Route: 042
     Dates: start: 20200623
  23. OBINUTUZUMAB. [Suspect]
     Active Substance: OBINUTUZUMAB
     Indication: B-CELL LYMPHOMA
     Dosage: THIS WAS MOST RECENT DOSE OF OBINUTUZUMAB, 1000 MG PRIOR TO SAE ONSET?DATE OF MOST RECENT DOSE OF OB
     Route: 042
     Dates: start: 20200616
  24. NETUPITANT [Concomitant]
     Active Substance: NETUPITANT
     Route: 048
     Dates: start: 20200617, end: 20200617
  25. AKYNZEO [Concomitant]
     Active Substance: NETUPITANT\PALONOSETRON HYDROCHLORIDE
     Route: 048
     Dates: start: 20200617, end: 20200617
  26. PLATELETS [Concomitant]
     Active Substance: HUMAN PLATELET, ALLOGENIC
     Indication: THROMBOCYTOPENIA
     Route: 042
     Dates: start: 20200624, end: 20200624
  27. MAGNESIUM SULFATE. [Concomitant]
     Active Substance: MAGNESIUM SULFATE
     Dosage: 10 OTHER
     Route: 042
     Dates: start: 20200624, end: 20200624
  28. PHENERGAN [Concomitant]
     Active Substance: PROMETHAZINE HYDROCHLORIDE
     Route: 042
     Dates: start: 20200616, end: 20200616
  29. MAXOLON [Concomitant]
     Active Substance: METOCLOPRAMIDE HYDROCHLORIDE
     Indication: NAUSEA
     Dosage: AS NEEDED
     Route: 048
     Dates: start: 20200620
  30. HARTMANNS [Concomitant]
     Active Substance: CALCIUM CHLORIDE\POTASSIUM CHLORIDE\SODIUM LACTATE
     Route: 042
     Dates: start: 20200624, end: 20200628
  31. CEFTRIAXONE. [Concomitant]
     Active Substance: CEFTRIAXONE
     Indication: BACTERIAL INFECTION
     Route: 042
     Dates: start: 20200627, end: 20200629
  32. PARACETAMOL [Concomitant]
     Active Substance: ACETAMINOPHEN
     Route: 048
     Dates: start: 20200623, end: 20200623
  33. VALACICLOVIR [Concomitant]
     Active Substance: VALACYCLOVIR HYDROCHLORIDE
     Route: 048
     Dates: start: 202001
  34. RED CELLS CONCENTRATES?LEUKOCYTES REDUCED [Concomitant]
     Active Substance: HUMAN RED BLOOD CELL
     Indication: ANAEMIA
     Route: 042
     Dates: start: 20200624, end: 20200624
  35. RED CELLS CONCENTRATES?LEUKOCYTES REDUCED [Concomitant]
     Active Substance: HUMAN RED BLOOD CELL
     Route: 042
     Dates: start: 20200628, end: 20200628
  36. PLATELETS [Concomitant]
     Active Substance: HUMAN PLATELET, ALLOGENIC
     Route: 042
     Dates: start: 20200627, end: 20200627
  37. DIAZEPAM. [Concomitant]
     Active Substance: DIAZEPAM
     Route: 048
     Dates: start: 20200627, end: 20200627
  38. GEMCITABINE. [Suspect]
     Active Substance: GEMCITABINE
     Indication: B-CELL LYMPHOMA
     Dosage: THIS WAS HIS MOST RECENT DOSE OF GEMCITABINE1660 MG PRIOR TO SAE ONSET
     Route: 042
     Dates: start: 20200617
  39. TOCILIZUMAB. [Suspect]
     Active Substance: TOCILIZUMAB
     Indication: B-CELL LYMPHOMA
     Dosage: DATE OF MOST RECENT DOSE OF TOCILIZUMAB, 488 MG PRIOR TO AE/SAE ONSET 25/JUN/2020?DATE OF MOST RECEN
     Route: 042
     Dates: start: 20200623
  40. CETIRIZINE [Concomitant]
     Active Substance: CETIRIZINE HYDROCHLORIDE
     Route: 048
     Dates: start: 20200624, end: 20200625
  41. CETIRIZINE [Concomitant]
     Active Substance: CETIRIZINE HYDROCHLORIDE
     Route: 048
     Dates: start: 20200623, end: 20200623
  42. RESPRIM FORTE [Concomitant]
     Active Substance: SULFAMETHOXAZOLE\TRIMETHOPRIM
     Dosage: 1 TABLET
     Route: 048
     Dates: start: 202001
  43. PLATELETS [Concomitant]
     Active Substance: HUMAN PLATELET, ALLOGENIC
     Route: 042
     Dates: start: 20200625, end: 20200625
  44. MAGMIN [Concomitant]
     Active Substance: MAGNESIUM ASPARTATE
     Route: 048
     Dates: start: 20200623, end: 20200623

REACTIONS (4)
  - Tumour lysis syndrome [Not Recovered/Not Resolved]
  - Liver function test abnormal [Recovered/Resolved]
  - Cytokine release syndrome [Recovered/Resolved]
  - Cytokine release syndrome [Recovered/Resolved]

NARRATIVE: CASE EVENT DATE: 20200623
